FAERS Safety Report 12654451 (Version 1)
Quarter: 2016Q3

REPORT INFORMATION
  Report Type: Spontaneous
  Country: US (occurrence: None)
  Receive Date: 20160815
  Receipt Date: 20160815
  Transmission Date: 20161109
  Serious: Yes (Other)
  Sender: FDA-Public Use
  Company Number: None

PATIENT
  Age: 66 Year
  Sex: Female
  Weight: 56.7 kg

DRUGS (4)
  1. ADDERALL [Concomitant]
     Active Substance: AMPHETAMINE ASPARTATE\AMPHETAMINE SULFATE\DEXTROAMPHETAMINE SACCHARATE\DEXTROAMPHETAMINE SULFATE
  2. XANAX [Concomitant]
     Active Substance: ALPRAZOLAM
  3. VALPROIC ACID, 250 MG [Suspect]
     Active Substance: VALPROIC ACID
     Indication: INSOMNIA
     Route: 048
     Dates: start: 20160416
  4. LUNESTA [Concomitant]
     Active Substance: ESZOPICLONE

REACTIONS (7)
  - Ear haemorrhage [None]
  - Pharyngeal injury [None]
  - Tongue injury [None]
  - Tongue discomfort [None]
  - Pain [None]
  - Pharyngeal haemorrhage [None]
  - Chemical injury [None]

NARRATIVE: CASE EVENT DATE: 20160416
